FAERS Safety Report 9578054 (Version 4)
Quarter: 2014Q4

REPORT INFORMATION
  Report Type: Spontaneous
  Country: JP (occurrence: JP)
  Receive Date: 20131001
  Receipt Date: 20141016
  Transmission Date: 20150529
  Serious: Yes (Hospitalization, Other)
  Sender: FDA-Public Use
  Company Number: JP-009507513-1309JPN013780

PATIENT
  Age: 78 Year
  Sex: Female
  Weight: 70 kg

DRUGS (11)
  1. PREDONINE [Concomitant]
     Active Substance: PREDNISOLONE\PREDNISOLONE ACETATE\PREDNISOLONE SODIUM SUCCINATE
     Dosage: 7 MG, 1 DAY, DIVIDED DOSE FREQUENCY UNKNOWN
     Route: 048
     Dates: start: 20090701
  2. ALLOID G [Concomitant]
     Active Substance: SODIUM ALGINATE
     Dosage: 30 ML, 1 DAY, DIVIDED DOSE FREQUENCY UNKNOWN
     Route: 048
     Dates: start: 20020407
  3. SELBEX [Concomitant]
     Active Substance: TEPRENONE
     Dosage: 150 MG, 1 DAY, DIVIDED DOSE FREQUENCY UNKNOWN
     Route: 048
     Dates: start: 20020407
  4. ZETIA [Concomitant]
     Active Substance: EZETIMIBE
     Dosage: 10 MG, 1 DAY, DIVIDED DOSE FREQUENCY UNKNOWN
     Route: 048
  5. FOSAMAX [Suspect]
     Active Substance: ALENDRONATE SODIUM
     Dosage: 35 MG, QW
     Route: 048
     Dates: start: 20071031, end: 20130328
  6. FOSAMAX [Suspect]
     Active Substance: ALENDRONATE SODIUM
     Indication: OSTEOPOROSIS
     Dosage: 5 MG, QD
     Route: 048
     Dates: start: 20021113, end: 20071031
  7. PREDONINE [Concomitant]
     Active Substance: PREDNISOLONE\PREDNISOLONE ACETATE\PREDNISOLONE SODIUM SUCCINATE
     Indication: STILL^S DISEASE ADULT ONSET
     Dosage: 60 MG, 1 DAY, DIVIDED DOSE FREQUENCY UNKNOWN
     Route: 048
     Dates: start: 20020407
  8. GASTER [Concomitant]
     Active Substance: FAMOTIDINE
     Dosage: 20 MG, 1 DAY, DIVIDED DOSE FREQUENCY UNKNOWN
     Route: 048
     Dates: start: 20020407
  9. OLMETEC [Concomitant]
     Active Substance: OLMESARTAN MEDOXOMIL
     Dosage: 20 MG, 1 DAY, DIVIDED DOSE FREQUENCY UNKNOWN
     Route: 048
  10. METHYCOBAL [Concomitant]
     Active Substance: METHYLCOBALAMIN
     Dosage: 1500 MG, 1 DAY, DIVIDED DOSE FREQUENCY UNKNOWN
     Dates: start: 20020407
  11. MOBIC [Concomitant]
     Active Substance: MELOXICAM
     Dosage: 10 MG, 1 DAY, DIVIDED DOSE FREQUENCY UNKNOWN
     Route: 048

REACTIONS (7)
  - Intramedullary rod insertion [Not Recovered/Not Resolved]
  - Atypical femur fracture [Not Recovered/Not Resolved]
  - Glucose tolerance impaired [Unknown]
  - Fall [Unknown]
  - Anaemia [Unknown]
  - Bone pain [Unknown]
  - Dizziness [Unknown]

NARRATIVE: CASE EVENT DATE: 201212
